FAERS Safety Report 15967865 (Version 1)
Quarter: 2019Q1

REPORT INFORMATION
  Report Type: Spontaneous
  Country: FR (occurrence: FR)
  Receive Date: 20190215
  Receipt Date: 20190215
  Transmission Date: 20190418
  Serious: Yes (Hospitalization)
  Sender: FDA-Public Use
  Company Number: FR-TEVA-2019-FR-1011707

PATIENT
  Age: 83 Year
  Sex: Female
  Weight: 78 kg

DRUGS (8)
  1. SOTALOL (CHLORHYDRATE DE) [Suspect]
     Active Substance: SOTALOL
     Indication: INTENTIONAL OVERDOSE
     Route: 048
     Dates: start: 20180924
  2. LASILIX FAIBLE 20 MG, COMPRIM? [Concomitant]
     Active Substance: FUROSEMIDE
  3. PANTOPRAZOLE [Concomitant]
     Active Substance: PANTOPRAZOLE
  4. TEMESTA 1 MG, COMPRIM? S?CABLE [Concomitant]
     Active Substance: LORAZEPAM
  5. XEROQUEL LP 50 MG, COMPRIM? ? LIB?RATION PROLONG?E [Concomitant]
     Active Substance: QUETIAPINE FUMARATE
  6. ELIQUIS [Concomitant]
     Active Substance: APIXABAN
     Indication: INTENTIONAL OVERDOSE
     Route: 048
     Dates: start: 20180924, end: 20180924
  7. VALSARTAN. [Concomitant]
     Active Substance: VALSARTAN
  8. LERCAN 10 MG, COMPRIM? PELLICUL? S?CABLE [Concomitant]
     Active Substance: LERCANIDIPINE HYDROCHLORIDE

REACTIONS (4)
  - Cardiogenic shock [Recovered/Resolved]
  - Sinus bradycardia [Recovered/Resolved]
  - Hypotension [Recovered/Resolved]
  - Electrocardiogram QT prolonged [Recovered/Resolved]

NARRATIVE: CASE EVENT DATE: 20180924
